FAERS Safety Report 7158298-5 (Version None)
Quarter: 2010Q4

REPORT INFORMATION
  Report Type: 
  Country: None (occurrence: None)
  Receive Date: 20101130
  Receipt Date: 20101115
  Transmission Date: 20110411
  Serious: Yes (Congenital Anomaly)
  Sender: FDA-Public Use
  Company Number: GER/UKI/09/0007812

PATIENT
  Sex: Male
  Weight: 2.38 kg

DRUGS (4)
  1. LAMOTRIGINE [Suspect]
     Indication: ILL-DEFINED DISORDER
     Dosage: 550 MG, TRANSPLACENTAL
     Route: 064
  2. TOPAMAX [Suspect]
     Indication: PARTIAL SEIZURES
     Dosage: 800 MG, TRANSPLACENTAL
     Route: 064
     Dates: end: 19961001
  3. CLOBAZAM (CLOBAZAM) [Suspect]
     Indication: ILL-DEFINED DISORDER
     Dosage: 20 MG, TRANSPLACENTAL
     Route: 064
  4. VIGABATRIN (VIGABATRIN) [Suspect]
     Indication: ILL-DEFINED DISORDER
     Dosage: 1000 MG, TRANSPLACENTAL
     Route: 064

REACTIONS (2)
  - CONGENITAL HYDRONEPHROSIS [None]
  - MATERNAL DRUGS AFFECTING FOETUS [None]
